FAERS Safety Report 15626846 (Version 2)
Quarter: 2019Q3

REPORT INFORMATION
  Report Type: Spontaneous
  Country: US (occurrence: US)
  Receive Date: 20181116
  Receipt Date: 20190730
  Transmission Date: 20191004
  Serious: Yes (Death, Other)
  Sender: FDA-Public Use
  Company Number: US-PFIZER INC-2018468271

PATIENT
  Age: 63 Year
  Sex: Female

DRUGS (65)
  1. INLYTA [Suspect]
     Active Substance: AXITINIB
     Indication: RENAL CELL CARCINOMA
     Dosage: 5 MG, 2X/DAY
     Dates: start: 20180814
  2. XGEVA [Concomitant]
     Active Substance: DENOSUMAB
     Dosage: 120 MG, UNK(ONCE)
     Route: 058
     Dates: start: 20180103
  3. XGEVA [Concomitant]
     Active Substance: DENOSUMAB
     Dosage: 120 MG, UNK(ONCE)
     Route: 058
     Dates: start: 20180208
  4. XGEVA [Concomitant]
     Active Substance: DENOSUMAB
     Dosage: 120 MG, UNK (ONCE)
     Route: 058
     Dates: start: 20180508
  5. XGEVA [Concomitant]
     Active Substance: DENOSUMAB
     Dosage: 120 MG, UNK (ONCE)
     Route: 058
     Dates: start: 20180711
  6. VITAMIN D3 [Concomitant]
     Active Substance: CHOLECALCIFEROL
     Dosage: 400 IU, UNK (ONCE)
     Route: 048
     Dates: start: 20180308
  7. VITAMIN D3 [Concomitant]
     Active Substance: CHOLECALCIFEROL
     Dosage: 400 IU, UNK (ONCE)
     Route: 048
     Dates: start: 20180405
  8. VITAMIN D3 [Concomitant]
     Active Substance: CHOLECALCIFEROL
     Dosage: 400 IU, UNK (ONCE)
     Route: 048
     Dates: start: 20180508
  9. PROCHLORPERAZINE MALEATE. [Concomitant]
     Active Substance: PROCHLORPERAZINE MALEATE
     Indication: NAUSEA
     Dosage: 10 MG, AS NEEDED (1-TAB ORAL Q 4-6 HR PRN)
     Route: 048
     Dates: start: 20180814
  10. FLUTICASONE. [Concomitant]
     Active Substance: FLUTICASONE
     Dosage: 1 DF, 2X/DAY ([100 MCG PER ACCTUATION DISK WITH DEVICE] 1 PUFF(S) INHALATION TWICE A DAY)
     Route: 045
     Dates: start: 20180724
  11. CABOMETYX [Concomitant]
     Active Substance: CABOZANTINIB S-MALATE
     Dosage: 60 MG, UNK(ONCE)
     Route: 048
     Dates: start: 20180209
  12. NIVOLUMAB [Concomitant]
     Active Substance: NIVOLUMAB
     Dosage: 240 MG, UNK (240 MG IV ONCE)
     Route: 042
     Dates: start: 20171205
  13. METOPROLOL SUCCINATE. [Concomitant]
     Active Substance: METOPROLOL SUCCINATE
     Dosage: 50 MG, 1X/DAY (IN MORNING)
     Route: 048
  14. XGEVA [Concomitant]
     Active Substance: DENOSUMAB
     Dosage: 120 MG, UNK(ONCE)
     Route: 058
     Dates: start: 20180405
  15. VITAMIN D3 [Concomitant]
     Active Substance: CHOLECALCIFEROL
     Dosage: 400 IU, UNK (ONCE)
     Dates: start: 20180814
  16. CABOZANTINIB S-MALATE [Concomitant]
     Active Substance: CABOZANTINIB S-MALATE
     Dosage: 60 MG, DAILY
     Route: 048
     Dates: start: 20180502
  17. CABOZANTINIB S-MALATE [Concomitant]
     Active Substance: CABOZANTINIB S-MALATE
     Dosage: 40 MG, DAILY
     Route: 048
     Dates: start: 20180711
  18. CABOZANTINIB S-MALATE [Concomitant]
     Active Substance: CABOZANTINIB S-MALATE
     Dosage: 40 MG, DAILY
     Route: 048
     Dates: start: 20180716
  19. IPRATROPIUM BROMIDE/ALBUTEROL SULFATE [Concomitant]
     Active Substance: ALBUTEROL SULFATE\IPRATROPIUM BROMIDE
     Dosage: 3 ML, UNK (3 ML INHALATION ONCE)
     Route: 045
     Dates: start: 20180517
  20. LORAZEPAM. [Concomitant]
     Active Substance: LORAZEPAM
     Indication: SLEEP DISORDER
  21. CALCIUM [Concomitant]
     Active Substance: CALCIUM
     Dosage: 500 MG, UNK (ONCE)
     Route: 048
     Dates: start: 20180405
  22. MAGNESIUM SULFATE. [Concomitant]
     Active Substance: MAGNESIUM SULFATE
     Dosage: 2000 MG, UNK (ONCE)
     Route: 042
     Dates: start: 20180814
  23. CABOMETYX [Concomitant]
     Active Substance: CABOZANTINIB S-MALATE
     Dosage: 40 MG, UNK (ONCE)
     Route: 048
     Dates: start: 20180711
  24. CABOMETYX [Concomitant]
     Active Substance: CABOZANTINIB S-MALATE
     Dosage: 40 MG, UNK (ONCE)
     Route: 048
     Dates: start: 20180508
  25. CABOMETYX [Concomitant]
     Active Substance: CABOZANTINIB S-MALATE
     Dosage: 60 MG, UNK (ONCE)
     Route: 048
     Dates: start: 20180405
  26. CABOMETYX [Concomitant]
     Active Substance: CABOZANTINIB S-MALATE
     Dosage: 60 MG, UNK(ONCE)
     Route: 048
     Dates: start: 20180308
  27. ALBUTEROL SULFATE. [Concomitant]
     Active Substance: ALBUTEROL SULFATE
     Dosage: 2 DF, AS NEEDED ([90 MCG ACTUATION HFA AEROSOL INHALER] 2 PUFF(S) INHALATION EVERY 4 HOURS AND PRN)
     Route: 045
     Dates: start: 20180711
  28. ALBUTEROL SULFATE. [Concomitant]
     Active Substance: ALBUTEROL SULFATE
     Dosage: 2.5 MG, UNK (2.5 MG INHALATION ONCE)
     Route: 042
     Dates: start: 20171227
  29. ALBUTEROL SULFATE. [Concomitant]
     Active Substance: ALBUTEROL SULFATE
     Dosage: 2 DF, AS NEEDED (90 MCG ACTUATION HFAAEROSOL INHALER] 2 PUFF(S) INHALATION EVERY 4 HOUS AND PRN)
     Route: 045
     Dates: start: 20171227
  30. CELECOXIB. [Concomitant]
     Active Substance: CELECOXIB
     Dosage: 200 MG, 1X/DAY (IN THE MORNING)
     Route: 048
  31. ESCITALOPRAM [Concomitant]
     Active Substance: ESCITALOPRAM OXALATE
     Dosage: 1 DF, 1X/DAY (EVENING)
     Route: 048
  32. AMLODIPINE [Concomitant]
     Active Substance: AMLODIPINE BESYLATE
     Dosage: 10 MG, DAILY
     Route: 048
  33. CALCIUM [Concomitant]
     Active Substance: CALCIUM
     Dosage: 500 MG, UNK (ONCE)
     Route: 048
     Dates: start: 20180208
  34. LEVOTHYROXINE. [Concomitant]
     Active Substance: LEVOTHYROXINE
     Dosage: 75 UG, DAILY
     Route: 048
     Dates: start: 20180814
  35. CABOZANTINIB [Concomitant]
     Active Substance: CABOZANTINIB
     Dosage: 60 MG, DAILY
     Route: 048
     Dates: start: 20180406
  36. MORPHINE [Concomitant]
     Active Substance: MORPHINE
     Dosage: UNK (MORPHINE [10 MG/5 ML SOLUTION] 0.5-1 ML ORAL EVERY 4 HOURS)
     Route: 048
     Dates: start: 20180208
  37. MORPHINE [Concomitant]
     Active Substance: MORPHINE
     Dosage: 2 MG, UNK (2 MG IVPUSH ONCE)
     Route: 042
     Dates: start: 20171201
  38. METHYLPREDNISOLONE SODIUM SUCCINATE. [Concomitant]
     Active Substance: METHYLPREDNISOLONE SODIUM SUCCINATE
     Dosage: 125 MG, UNK (125 MG IV ONCE)
     Route: 042
     Dates: start: 20171227
  39. CALCIUM [Concomitant]
     Active Substance: CALCIUM
     Dosage: 500 MG, UNK (ONCE)
     Route: 048
     Dates: start: 20180103
  40. VITAMIN D3 [Concomitant]
     Active Substance: CHOLECALCIFEROL
     Dosage: 400 IU, UNK(ONCE)
     Route: 048
     Dates: start: 20180103
  41. NORMAL SALINE [Concomitant]
     Active Substance: SODIUM CHLORIDE
     Dosage: 1000 1000 ML IV ONCE
     Route: 042
     Dates: start: 20171129
  42. NORMAL SALINE [Concomitant]
     Active Substance: SODIUM CHLORIDE
     Dosage: 1000 1000 ML IV ONCE
     Route: 042
     Dates: start: 20171130
  43. XGEVA [Concomitant]
     Active Substance: DENOSUMAB
     Dosage: 120 MG, UNK (ONCE)
     Route: 058
     Dates: start: 20180814
  44. CALCIUM [Concomitant]
     Active Substance: CALCIUM
     Dosage: 500 MG, UNK (ONCE)
     Route: 048
     Dates: start: 20180814
  45. CALCIUM [Concomitant]
     Active Substance: CALCIUM
     Dosage: 500 MG, UNK (ONCE)
     Route: 048
     Dates: start: 20180711
  46. VITAMIN D3 [Concomitant]
     Active Substance: CHOLECALCIFEROL
     Dosage: 400 IU, UNK (ONCE)
     Route: 048
     Dates: start: 20180711
  47. NORMAL SALINE [Concomitant]
     Active Substance: SODIUM CHLORIDE
     Dosage: 1000 1000 ML IV ONCE
     Route: 042
     Dates: start: 20171201
  48. INLYTA [Suspect]
     Active Substance: AXITINIB
     Dosage: 5 MG, 2X/DAY
     Route: 048
     Dates: start: 20180831
  49. INLYTA [Suspect]
     Active Substance: AXITINIB
     Dosage: 5 MG, 1X/DAY
     Route: 048
     Dates: start: 20180831
  50. LISINOPRIL. [Concomitant]
     Active Substance: LISINOPRIL
     Dosage: 40 MG, DAILY
     Route: 048
     Dates: start: 20180827
  51. XGEVA [Concomitant]
     Active Substance: DENOSUMAB
     Dosage: 120 MG, UNK(ONCE)
     Route: 058
     Dates: start: 20180308
  52. XGEVA [Concomitant]
     Active Substance: DENOSUMAB
     Dosage: 120 MG, UNK (ONCE)
     Route: 058
     Dates: start: 20180612
  53. CALCIUM [Concomitant]
     Active Substance: CALCIUM
     Dosage: 500 MG, UNK (ONCE)
     Route: 048
     Dates: start: 20180508
  54. CALCIUM [Concomitant]
     Active Substance: CALCIUM
     Dosage: 500 MG, UNK (ONCE)
     Route: 048
     Dates: start: 20180308
  55. VITAMIN D3 [Concomitant]
     Active Substance: CHOLECALCIFEROL
     Dosage: 400 IU, UNK (ONCE)
     Route: 048
     Dates: start: 20180208
  56. VITAMIN D3 [Concomitant]
     Active Substance: CHOLECALCIFEROL
     Dosage: 400 IU, UNK (ONCE)
     Route: 048
     Dates: start: 20180612
  57. PROCHLORPERAZINE MALEATE. [Concomitant]
     Active Substance: PROCHLORPERAZINE MALEATE
     Indication: VOMITING
  58. MAGNESIUM SULFATE. [Concomitant]
     Active Substance: MAGNESIUM SULFATE
     Dosage: 2000 MG, UNK (ONCE)
     Route: 042
     Dates: start: 20180725
  59. CABOMETYX [Concomitant]
     Active Substance: CABOZANTINIB S-MALATE
     Dosage: 40 MG, UNK (ONCE)
     Route: 048
     Dates: start: 20180612
  60. NIVOLUMAB [Concomitant]
     Active Substance: NIVOLUMAB
     Dosage: 240 MG, UNK (240 MG IV ONCE)
     Route: 042
     Dates: start: 20180103
  61. BUPROPION HCL [Concomitant]
     Active Substance: BUPROPION HYDROCHLORIDE
     Dosage: 300 MG, 1X/DAY (IN MORNING)
     Route: 048
  62. XGEVA [Concomitant]
     Active Substance: DENOSUMAB
     Dosage: 120 MG, UNK(ONCE)
     Route: 058
     Dates: start: 20171121
  63. CALCIUM [Concomitant]
     Active Substance: CALCIUM
     Dosage: 500 MG, UNK (ONCE)
     Route: 048
     Dates: start: 20180612
  64. LORAZEPAM. [Concomitant]
     Active Substance: LORAZEPAM
     Indication: ANXIETY
     Dosage: 0.5 MG, AS NEEDED (1 TAB ORAL PO Q 8-12 HOURS PRN)
     Route: 048
     Dates: start: 20180329
  65. OMEPRAZOLE. [Concomitant]
     Active Substance: OMEPRAZOLE
     Dosage: 20 MG, 2X/DAY
     Route: 048
     Dates: start: 20180109

REACTIONS (1)
  - Death [Fatal]

NARRATIVE: CASE EVENT DATE: 20180912
